FAERS Safety Report 5270216-3 (Version None)
Quarter: 2007Q1

REPORT INFORMATION
  Report Type: 
  Country: None (occurrence: None)
  Receive Date: 20070320
  Receipt Date: 20070308
  Transmission Date: 20070707
  Serious: Yes (Other)
  Sender: FDA-Public Use
  Company Number: US-PFIZER INC-2007018984

PATIENT
  Sex: Female

DRUGS (2)
  1. CELEBREX [Suspect]
  2. BEXTRA [Suspect]
     Dates: start: 20030326, end: 20040419

REACTIONS (2)
  - CARDIAC DISORDER [None]
  - RENAL DISORDER [None]
